FAERS Safety Report 7987219-8 (Version None)
Quarter: 2011Q4

REPORT INFORMATION
  Report Type: 
  Country: None (occurrence: None)
  Receive Date: 20111216
  Receipt Date: 20111209
  Transmission Date: 20120403
  Serious: Yes (Hospitalization)
  Sender: FDA-Public Use
  Company Number: PHHY2011FR108060

PATIENT
  Sex: Female

DRUGS (8)
  1. FUCIDINE CAP [Concomitant]
     Dosage: UNK
     Dates: start: 20110916, end: 20111007
  2. LOVENOX [Concomitant]
     Dosage: UNK
  3. IMOVANE [Concomitant]
     Dosage: UNK
  4. RIMACTANE [Suspect]
     Dosage: 600 MG, BID
     Route: 048
     Dates: start: 20110902, end: 20111010
  5. LOSARTAN POTASSIUM [Concomitant]
     Dosage: UNK
  6. SECTRAL [Concomitant]
     Dosage: UNK
  7. MEMANTINE HYDROCHLORIDE [Concomitant]
     Dosage: UNK
  8. TRANSIPEG [Concomitant]
     Dosage: UNK

REACTIONS (3)
  - JAUNDICE [None]
  - JAUNDICE CHOLESTATIC [None]
  - GALLBLADDER DISORDER [None]
